FAERS Safety Report 19498232 (Version 4)
Quarter: 2021Q4

REPORT INFORMATION
  Report Type: Spontaneous
  Country: PT (occurrence: PT)
  Receive Date: 20210706
  Receipt Date: 20211123
  Transmission Date: 20220303
  Serious: Yes (Death, Other)
  Sender: FDA-Public Use
  Company Number: PT-GILEAD-2021-0539214

PATIENT
  Age: 63 Year
  Sex: Male

DRUGS (1)
  1. YESCARTA [Suspect]
     Active Substance: AXICABTAGENE CILOLEUCEL
     Indication: Diffuse large B-cell lymphoma refractory
     Dosage: UNK
     Route: 042
     Dates: start: 20201103, end: 20201103

REACTIONS (5)
  - Hypogammaglobulinaemia [Unknown]
  - Cytokine release syndrome [Recovered/Resolved]
  - COVID-19 [Fatal]
  - Pyrexia [Recovered/Resolved]
  - Hypoxia [Unknown]

NARRATIVE: CASE EVENT DATE: 20201104
